FAERS Safety Report 5865265-8 (Version None)
Quarter: 2008Q3

REPORT INFORMATION
  Report Type: 
  Country: None (occurrence: None)
  Receive Date: 20080829
  Receipt Date: 20070912
  Transmission Date: 20090109
  Serious: No
  Sender: FDA-Public Use
  Company Number: A0681464A

PATIENT
  Age: 56 Year
  Sex: Female

DRUGS (8)
  1. BECONASE [Suspect]
     Dosage: 1SPR TWICE PER DAY
     Route: 045
     Dates: start: 19970101, end: 20070501
  2. FLONASE [Suspect]
     Dosage: 4SPR PER DAY
     Route: 045
     Dates: start: 20070501
  3. SYNTHROID [Concomitant]
  4. AVONEX [Concomitant]
  5. DETROL [Concomitant]
  6. ENTOCORT EC [Concomitant]
  7. ACIPHEX [Concomitant]
  8. CYMBALTA [Concomitant]

REACTIONS (1)
  - HEADACHE [None]
